FAERS Safety Report 8547261 (Version 2)
Quarter: 2014Q2

REPORT INFORMATION
  Report Type: Spontaneous
  Country: CN (occurrence: CN)
  Receive Date: 20120504
  Receipt Date: 20140403
  Transmission Date: 20141212
  Serious: Yes (Hospitalization)
  Sender: FDA-Public Use
  Company Number: CN-JNJFOC-20120502086

PATIENT
  Age: 50 Year
  Sex: Male

DRUGS (1)
  1. TOPAMAX [Suspect]
     Indication: EPILEPSY
     Route: 048
     Dates: start: 200803

REACTIONS (4)
  - Depression [Not Recovered/Not Resolved]
  - Injury [Recovering/Resolving]
  - Lower limb fracture [Unknown]
  - Dyslogia [Not Recovered/Not Resolved]
